FAERS Safety Report 20663300 (Version 2)
Quarter: 2022Q2

REPORT INFORMATION
  Report Type: Spontaneous
  Country: PL (occurrence: None)
  Receive Date: 20220401
  Receipt Date: 20220505
  Transmission Date: 20220721
  Serious: Yes (Other)
  Sender: FDA-Public Use
  Company Number: PL-ROCHE-3057485

PATIENT
  Age: 70 Year
  Sex: Male

DRUGS (1)
  1. OBINUTUZUMAB [Suspect]
     Active Substance: OBINUTUZUMAB
     Indication: Plasmablastic lymphoma
     Route: 042
     Dates: start: 20220310

REACTIONS (6)
  - Chills [Unknown]
  - Hypotension [Unknown]
  - Shock [Unknown]
  - Hyperhidrosis [Unknown]
  - Diarrhoea [Unknown]
  - Renal function test abnormal [Unknown]

NARRATIVE: CASE EVENT DATE: 20220310
